FAERS Safety Report 18934951 (Version 2)
Quarter: 2021Q1

REPORT INFORMATION
  Report Type: Spontaneous
  Country: FR (occurrence: FR)
  Receive Date: 20210224
  Receipt Date: 20210302
  Transmission Date: 20210420
  Serious: Yes (Other)
  Sender: FDA-Public Use
  Company Number: FR-ROCHE-2773453

PATIENT
  Age: 27 Year
  Sex: Female

DRUGS (6)
  1. LEXOMIL [Suspect]
     Active Substance: BROMAZEPAM
     Route: 048
     Dates: start: 2020
  2. LEXOMIL [Suspect]
     Active Substance: BROMAZEPAM
     Indication: ANXIETY
     Dosage: 10?15 TABLETS PER DAY
     Route: 048
     Dates: start: 2019
  3. PAROXETINE. [Concomitant]
     Active Substance: PAROXETINE
  4. VALIUM [Suspect]
     Active Substance: DIAZEPAM
     Indication: ANXIETY
     Route: 065
  5. SERESTA [Suspect]
     Active Substance: OXAZEPAM
     Indication: PRODUCT USED FOR UNKNOWN INDICATION
     Route: 065
  6. SUBUTEX [Concomitant]
     Active Substance: BUPRENORPHINE HYDROCHLORIDE

REACTIONS (5)
  - Overdose [Unknown]
  - Drug dependence [Recovered/Resolved]
  - Bruxism [Unknown]
  - Epilepsy [Unknown]
  - Drug dependence [Unknown]

NARRATIVE: CASE EVENT DATE: 202009
